FAERS Safety Report 10720816 (Version 3)
Quarter: 2015Q1

REPORT INFORMATION
  Report Type: Spontaneous
  Country: US (occurrence: US)
  Receive Date: 20150119
  Receipt Date: 20150304
  Transmission Date: 20150721
  Serious: No
  Sender: FDA-Public Use
  Company Number: US-PFIZER INC-2015016203

PATIENT
  Age: 69 Year
  Sex: Female

DRUGS (4)
  1. ADVIL [Suspect]
     Active Substance: IBUPROFEN
     Dosage: UNK
     Dates: end: 201502
  2. DILANTIN [Concomitant]
     Active Substance: PHENYTOIN
     Dosage: 200 MG, TWICE A DAY
     Dates: start: 2000
  3. ATENOLOL. [Concomitant]
     Active Substance: ATENOLOL
     Dosage: 50 MG, TWICE A DAY
     Dates: start: 2000
  4. ADVIL [Suspect]
     Active Substance: IBUPROFEN
     Indication: ARTHRITIS
     Dosage: 200 MG, THREE TIMES A DAY
     Dates: start: 201406

REACTIONS (3)
  - Pain [Recovering/Resolving]
  - Back pain [Recovering/Resolving]
  - Chromaturia [Recovered/Resolved]
